FAERS Safety Report 4804419-6 (Version None)
Quarter: 2005Q4

REPORT INFORMATION
  Report Type: 
  Country: None (occurrence: None)
  Receive Date: 20051020
  Receipt Date: 20051014
  Transmission Date: 20060501
  Serious: Yes (Other)
  Sender: FDA-Public Use
  Company Number: US-GLAXOSMITHKLINE-A0578695A

PATIENT
  Sex: Female
  Weight: 3.7 kg

DRUGS (2)
  1. LAMICTAL [Suspect]
     Indication: BIPOLAR DISORDER
     Dates: start: 20050405
  2. PROZAC [Concomitant]
     Dosage: 20MG PER DAY

REACTIONS (3)
  - DRUG EXPOSURE DURING PREGNANCY [None]
  - JAUNDICE NEONATAL [None]
  - WEIGHT DECREASE NEONATAL [None]
